FAERS Safety Report 18671026 (Version 1)
Quarter: 2020Q4

REPORT INFORMATION
  Report Type: Spontaneous
  Country: EC (occurrence: EC)
  Receive Date: 20201228
  Receipt Date: 20201228
  Transmission Date: 20210114
  Serious: Yes (Hospitalization)
  Sender: FDA-Public Use
  Company Number: EC-COLLEGIUM PHARMACEUTICAL, INC.-2020CGM01138

PATIENT
  Age: 27 Year
  Sex: Male

DRUGS (2)
  1. NUCYNTA ER [Suspect]
     Active Substance: TAPENTADOL HYDROCHLORIDE
     Indication: ARTHRALGIA
  2. NUCYNTA ER [Suspect]
     Active Substance: TAPENTADOL HYDROCHLORIDE
     Indication: PAIN IN EXTREMITY
     Dosage: 50 MG, 2X/DAY (EVERY 12 HOURS)
     Route: 048

REACTIONS (10)
  - Autonomic nervous system imbalance [Unknown]
  - Pallor [Unknown]
  - Tinnitus [Unknown]
  - Speech disorder [Unknown]
  - Tachycardia [Unknown]
  - Palpitations [Unknown]
  - Anxiety [Unknown]
  - Diarrhoea [Unknown]
  - Dry mouth [Unknown]
  - Feeling abnormal [Unknown]
